FAERS Safety Report 25892491 (Version 1)
Quarter: 2025Q4

REPORT INFORMATION
  Report Type: Spontaneous
  Country: US (occurrence: None)
  Receive Date: 20251007
  Receipt Date: 20251007
  Transmission Date: 20260118
  Serious: Yes (Hospitalization, Disabling)
  Sender: FDA-CTU
  Company Number: None

PATIENT
  Sex: Female
  Weight: 82.8 kg

DRUGS (1)
  1. LEVETIRACETAM [Suspect]
     Active Substance: LEVETIRACETAM
     Indication: Seizure

REACTIONS (2)
  - Borderline personality disorder [None]
  - Impaired quality of life [None]
